FAERS Safety Report 4816503-1 (Version None)
Quarter: 2005Q4

REPORT INFORMATION
  Report Type: 
  Country: None (occurrence: None)
  Receive Date: 20051028
  Receipt Date: 20051014
  Transmission Date: 20060501
  Serious: Yes (Death, Hospitalization, Other)
  Sender: FDA-Public Use
  Company Number: USA-2005-0021406

PATIENT
  Age: 79 Year
  Sex: Male
  Weight: 86 kg

DRUGS (16)
  1. OXYCONTIN [Suspect]
     Indication: PAIN
     Dosage: SEE IMAGE, ORAL
     Route: 048
     Dates: start: 20050201, end: 20050711
  2. OXYCONTIN [Suspect]
     Indication: PAIN
     Dosage: SEE IMAGE, ORAL
     Route: 048
     Dates: start: 20050712
  3. OXYCODONE HCL [Suspect]
     Indication: PAIN
     Dosage: SEE IMAGE
     Dates: start: 20050215, end: 20050905
  4. CEP-7055() [Suspect]
     Indication: MESOTHELIOMA
     Dosage: 240 MG, TID,  ORAL
     Route: 048
     Dates: start: 20050420, end: 20050908
  5. IBUPROFEN [Suspect]
     Indication: PAIN
     Dosage: 800 MG, TID
     Dates: start: 20050906
  6. VERAPAMIL [Concomitant]
  7. HYDROCHLOROTHIAZIDE WITH TRIAMTERENE (HYDROCHLOROTHIAZIDE, TRIAMTERENE [Concomitant]
  8. VITAMINS [Concomitant]
  9. AMBIEN [Concomitant]
  10. LORAZEPAM [Concomitant]
  11. REGLAN [Concomitant]
  12. ZANTAC [Concomitant]
  13. DECADRON [Concomitant]
  14. DONNATAL ELIXIR (ATROPINE SULFATE, HYOSCINE HYDROBROMIDE, HYOSCYAMINE [Concomitant]
  15. TOPROL-XL [Concomitant]
  16. LISINOPRIL [Concomitant]

REACTIONS (11)
  - CONFUSIONAL STATE [None]
  - DYSPNOEA [None]
  - GOITRE [None]
  - MALIGNANT NEOPLASM PROGRESSION [None]
  - MENTAL STATUS CHANGES [None]
  - METASTASES TO LUNG [None]
  - METASTASIS [None]
  - PLEURAL EFFUSION [None]
  - PLEURAL FIBROSIS [None]
  - PNEUMONIA [None]
  - SOMNOLENCE [None]
